FAERS Safety Report 11261984 (Version 1)
Quarter: 2015Q3

REPORT INFORMATION
  Report Type: Spontaneous
  Country: US (occurrence: US)
  Receive Date: 20150710
  Receipt Date: 20150710
  Transmission Date: 20151125
  Serious: No
  Sender: FDA-Public Use
  Company Number: US-PURDUE-USA-2015-0122446

PATIENT
  Age: 57 Year
  Sex: Male

DRUGS (1)
  1. BUTRANS [Suspect]
     Active Substance: BUPRENORPHINE
     Indication: PAIN
     Dosage: 10 MCG/HR, WEEKLY
     Route: 062
     Dates: start: 201501, end: 20150310

REACTIONS (5)
  - Erythema [Recovering/Resolving]
  - Application site pruritus [Recovering/Resolving]
  - Pruritus [Recovering/Resolving]
  - Application site discolouration [Unknown]
  - Application site erythema [Recovering/Resolving]

NARRATIVE: CASE EVENT DATE: 201501
